FAERS Safety Report 4359768-5 (Version None)
Quarter: 2004Q2

REPORT INFORMATION
  Report Type: 
  Country: None (occurrence: None)
  Receive Date: 20040518
  Receipt Date: 20000113
  Transmission Date: 20050107
  Serious: Yes (Life-Threatening, Hospitalization, Other)
  Sender: FDA-Public Use
  Company Number: US-GLAXOSMITHKLINE-A0319128A

PATIENT
  Age: 61 Year
  Sex: Male

DRUGS (13)
  1. AVANDIA [Suspect]
     Indication: DIABETES MELLITUS
     Route: 048
     Dates: start: 19991101, end: 20000111
  2. NPH INSULIN [Concomitant]
  3. INDERAL [Concomitant]
     Dosage: 20MG PER DAY
     Route: 048
  4. COLCHICINE [Concomitant]
     Indication: GOUT
     Dosage: .6MG TWICE PER DAY
     Route: 048
  5. PROPULSID [Concomitant]
     Dosage: 10MG TWICE PER DAY
     Route: 048
  6. PREVACID [Concomitant]
     Dosage: 30MG PER DAY
     Route: 048
  7. HERBAL PRODUCT [Concomitant]
  8. REGULAR INSULIN [Concomitant]
  9. AMBIEN [Concomitant]
  10. AUGMENTIN [Concomitant]
  11. ACETAMINOPHEN W/ CODEINE [Concomitant]
  12. PROPANOLOL HYDROCHLORIDE [Concomitant]
  13. SYNTHROID [Concomitant]

REACTIONS (26)
  - ABDOMINAL DISTENSION [None]
  - ALANINE AMINOTRANSFERASE INCREASED [None]
  - ASPARTATE AMINOTRANSFERASE INCREASED [None]
  - ASTHENIA [None]
  - BLOOD ALKALINE PHOSPHATASE INCREASED [None]
  - BLOOD BILIRUBIN INCREASED [None]
  - CARDIAC VALVE DISEASE [None]
  - CHOLECYSTITIS [None]
  - COMA [None]
  - DISORIENTATION [None]
  - ENCEPHALOPATHY [None]
  - FATIGUE [None]
  - HEPATIC CIRRHOSIS [None]
  - HEPATIC ENZYME INCREASED [None]
  - HEPATIC FAILURE [None]
  - HEPATITIS A [None]
  - JAUNDICE [None]
  - MALAISE [None]
  - OEDEMA PERIPHERAL [None]
  - PERICARDIAL EFFUSION [None]
  - PERIPHERAL VASCULAR DISORDER [None]
  - PROTHROMBIN TIME PROLONGED [None]
  - PYREXIA [None]
  - SUBCLAVIAN ARTERY STENOSIS [None]
  - VASCULAR OCCLUSION [None]
  - VENTRICULAR HYPERTROPHY [None]
